FAERS Safety Report 15968571 (Version 2)
Quarter: 2025Q3

REPORT INFORMATION
  Report Type: Spontaneous
  Country: EU (occurrence: EU)
  Receive Date: 20190215
  Receipt Date: 20250807
  Transmission Date: 20251021
  Serious: Yes (Hospitalization)
  Sender: MYLAN
  Company Number: EU-KRKA-RO2018K11536LIT

PATIENT
  Age: 35 Year
  Sex: Male

DRUGS (20)
  1. NITROGLYCERIN [Suspect]
     Active Substance: NITROGLYCERIN
     Indication: Product used for unknown indication
  2. NITROGLYCERIN [Suspect]
     Active Substance: NITROGLYCERIN
     Route: 042
  3. NITROGLYCERIN [Suspect]
     Active Substance: NITROGLYCERIN
     Route: 042
  4. NITROGLYCERIN [Suspect]
     Active Substance: NITROGLYCERIN
  5. MORPHINE [Suspect]
     Active Substance: MORPHINE
     Indication: Product used for unknown indication
  6. MORPHINE [Suspect]
     Active Substance: MORPHINE
     Route: 042
  7. MORPHINE [Suspect]
     Active Substance: MORPHINE
     Route: 042
  8. MORPHINE [Suspect]
     Active Substance: MORPHINE
  9. HEPARIN [Suspect]
     Active Substance: HEPARIN SODIUM
     Indication: Product used for unknown indication
  10. HEPARIN [Suspect]
     Active Substance: HEPARIN SODIUM
     Route: 042
  11. HEPARIN [Suspect]
     Active Substance: HEPARIN SODIUM
     Route: 042
  12. HEPARIN [Suspect]
     Active Substance: HEPARIN SODIUM
  13. CLOPIDOGREL [Suspect]
     Active Substance: CLOPIDOGREL BISULFATE
     Indication: Product used for unknown indication
  14. CLOPIDOGREL [Suspect]
     Active Substance: CLOPIDOGREL BISULFATE
     Route: 065
  15. CLOPIDOGREL [Suspect]
     Active Substance: CLOPIDOGREL BISULFATE
     Route: 065
  16. CLOPIDOGREL [Suspect]
     Active Substance: CLOPIDOGREL BISULFATE
  17. ASPIRIN [Suspect]
     Active Substance: ASPIRIN
     Indication: Product used for unknown indication
  18. ASPIRIN [Suspect]
     Active Substance: ASPIRIN
     Route: 065
  19. ASPIRIN [Suspect]
     Active Substance: ASPIRIN
     Route: 065
  20. ASPIRIN [Suspect]
     Active Substance: ASPIRIN

REACTIONS (1)
  - Cholelithiasis [Unknown]
